FAERS Safety Report 4858827-8 (Version None)
Quarter: 2005Q4

REPORT INFORMATION
  Report Type: 
  Country: None (occurrence: None)
  Receive Date: 20051219
  Receipt Date: 20051104
  Transmission Date: 20060501
  Serious: No
  Sender: FDA-Public Use
  Company Number: US-GLAXOSMITHKLINE-A0581010A

PATIENT
  Sex: Male

DRUGS (3)
  1. NICODERM CQ [Suspect]
     Dosage: 21MG AS DIRECTED
  2. NICODERM CQ [Suspect]
     Dosage: 14MG AS DIRECTED
  3. NICODERM CQ [Suspect]
     Dosage: 7MG AS DIRECTED

REACTIONS (1)
  - INSOMNIA [None]
